FAERS Safety Report 17252221 (Version 1)
Quarter: 2020Q1

REPORT INFORMATION
  Report Type: Spontaneous
  Country: US (occurrence: US)
  Receive Date: 20200108
  Receipt Date: 20200108
  Transmission Date: 20200409
  Serious: Yes (Hospitalization)
  Sender: FDA-Public Use
  Company Number: None

PATIENT
  Age: 64 Year
  Sex: Female

DRUGS (1)
  1. SPRYCEL [Suspect]
     Active Substance: DASATINIB
     Indication: CHRONIC MYELOID LEUKAEMIA
     Route: 048
     Dates: start: 20180620

REACTIONS (7)
  - Blood count abnormal [None]
  - Gastrointestinal haemorrhage [None]
  - Rash [None]
  - Insomnia [None]
  - Respiration abnormal [None]
  - Vomiting [None]
  - Nausea [None]
